FAERS Safety Report 6859931-5 (Version None)
Quarter: 2010Q3

REPORT INFORMATION
  Report Type: 
  Country: None (occurrence: None)
  Receive Date: 20100720
  Receipt Date: 20100707
  Transmission Date: 20110219
  Serious: Yes (Other)
  Sender: FDA-Public Use
  Company Number: PHFR2010GB00453

PATIENT
  Sex: Male

DRUGS (2)
  1. CLOZARIL [Suspect]
     Indication: SCHIZOPHRENIA
     Dosage: 850MG/DAY
     Route: 048
     Dates: start: 20091014
  2. SULPIRIDE [Concomitant]
     Indication: MENTAL DISORDER

REACTIONS (7)
  - ANTIPSYCHOTIC DRUG LEVEL BELOW THERAPEUTIC [None]
  - BLOOD TEST ABNORMAL [None]
  - DELUSIONAL DISORDER, UNSPECIFIED TYPE [None]
  - DRUG INEFFECTIVE [None]
  - LOGORRHOEA [None]
  - MENTAL DISORDER [None]
  - PSYCHOTIC DISORDER [None]
